FAERS Safety Report 9780337 (Version 2)
Quarter: 2014Q1

REPORT INFORMATION
  Report Type: Other
  Country: US (occurrence: US)
  Receive Date: 20131224
  Receipt Date: 20140107
  Transmission Date: 20141002
  Serious: Yes (Death)
  Sender: FDA-Public Use
  Company Number: US-LUPIN PHARMACEUTICALS INC.-E2B_00001550

PATIENT
  Age: 62 Year
  Sex: Female

DRUGS (12)
  1. SIMVASTATIN TABLETS USP 40 MG [Suspect]
     Indication: BLOOD CHOLESTEROL
  2. DIPHENHYDRAMINE [Suspect]
     Indication: PRODUCT USED FOR UNKNOWN INDICATION
     Route: 065
  3. DONEPEZIL [Suspect]
     Indication: PRODUCT USED FOR UNKNOWN INDICATION
     Route: 048
  4. PROPRANOLOL [Suspect]
     Indication: PRODUCT USED FOR UNKNOWN INDICATION
     Route: 065
  5. DIVALPROEX [Suspect]
     Indication: PRODUCT USED FOR UNKNOWN INDICATION
     Route: 065
  6. ALPRAZOLAM [Suspect]
     Indication: ANXIETY
     Dosage: HALF A TABLET OF 2MG IN DAYTIME AND 2MG AT NIGHT
     Route: 048
  7. ZIPRASIDONE [Suspect]
     Indication: PRODUCT USED FOR UNKNOWN INDICATION
     Dosage: 80MG IN THE MORNING AND 160MG (80MG X 2) AT NIGHT
     Route: 065
  8. METFORMIN [Suspect]
     Indication: PRODUCT USED FOR UNKNOWN INDICATION
     Dosage: 500MG IN THE MORNING AND 1000MG (500MG X 2 TABLETS) IN THE EVENING
     Route: 048
  9. FENOFIBRATE [Suspect]
     Indication: PRODUCT USED FOR UNKNOWN INDICATION
     Route: 048
  10. LEVETIRACETAM [Suspect]
     Indication: PRODUCT USED FOR UNKNOWN INDICATION
     Route: 048
  11. ANASTROZOLE [Suspect]
     Indication: PRODUCT USED FOR UNKNOWN INDICATION
     Route: 048
  12. SALSALATE [Suspect]
     Indication: ARTHRALGIA
     Route: 048

REACTIONS (1)
  - Accidental exposure to product [Fatal]
